FAERS Safety Report 22709670 (Version 3)
Quarter: 2024Q1

REPORT INFORMATION
  Report Type: Report from Study
  Country: GB (occurrence: GB)
  Receive Date: 20230717
  Receipt Date: 20240313
  Transmission Date: 20240410
  Serious: Yes (Hospitalization)
  Sender: FDA-Public Use
  Company Number: GB-002147023-NVSC2023GB156988

PATIENT
  Sex: Female

DRUGS (1)
  1. MAYZENT [Suspect]
     Active Substance: SIPONIMOD
     Indication: Multiple sclerosis
     Dosage: UNK UNK, QD
     Route: 048
     Dates: start: 19801019

REACTIONS (6)
  - Cauda equina syndrome [Unknown]
  - Back pain [Unknown]
  - Lymphocyte count decreased [Unknown]
  - Urinary tract infection [Unknown]
  - Alanine aminotransferase increased [Recovered/Resolved]
  - Palpitations [Unknown]
